FAERS Safety Report 18132860 (Version 3)
Quarter: 2020Q4

REPORT INFORMATION
  Report Type: Report from Study
  Country: ES (occurrence: ES)
  Receive Date: 20200811
  Receipt Date: 20201009
  Transmission Date: 20210113
  Serious: Yes (Other)
  Sender: FDA-Public Use
  Company Number: ES-ORION CORPORATION ORION PHARMA-20_00010259

PATIENT
  Age: 67 Year
  Sex: Female

DRUGS (4)
  1. STALEVO [Suspect]
     Active Substance: CARBIDOPA\ENTACAPONE\LEVODOPA
     Indication: ON AND OFF PHENOMENON
     Dosage: LEVODOPA DOSE: 500 (NO UNITS PROVIDED), UNKNOWN
     Route: 065
  2. XADAGO [Suspect]
     Active Substance: SAFINAMIDE MESYLATE
     Indication: ON AND OFF PHENOMENON
     Route: 065
  3. MIRAPEXIN [Suspect]
     Active Substance: PRAMIPEXOLE
     Indication: ON AND OFF PHENOMENON
     Route: 065
  4. ONGENTYS [Suspect]
     Active Substance: OPICAPONE
     Indication: ON AND OFF PHENOMENON
     Route: 065

REACTIONS (9)
  - Dystonia [Unknown]
  - Gait disturbance [Unknown]
  - Reduced facial expression [Unknown]
  - Muscle rigidity [Unknown]
  - Hallucination [Unknown]
  - Balance disorder [Unknown]
  - Delusion [Unknown]
  - Therapeutic response shortened [Unknown]
  - Bradykinesia [Unknown]
